FAERS Safety Report 7203918-X (Version None)
Quarter: 2010Q4

REPORT INFORMATION
  Report Type: 
  Country: None (occurrence: None)
  Receive Date: 20101230
  Receipt Date: 20101221
  Transmission Date: 20110411
  Serious: Yes (Other)
  Sender: FDA-Public Use
  Company Number: JP-JNJFOC-20101005302

PATIENT
  Sex: Female
  Weight: 60 kg

DRUGS (11)
  1. REMICADE [Suspect]
     Indication: RHEUMATOID ARTHRITIS
     Route: 042
  2. REMICADE [Suspect]
     Route: 042
  3. REMICADE [Suspect]
     Dosage: 4TH INFUSION
     Route: 042
  4. REMICADE [Suspect]
     Route: 042
  5. METHOTREXATE [Suspect]
     Indication: RHEUMATOID ARTHRITIS
     Route: 048
  6. RIMATIL [Concomitant]
     Indication: RHEUMATOID ARTHRITIS
     Route: 048
  7. CELECOX [Concomitant]
     Indication: RHEUMATOID ARTHRITIS
     Route: 048
  8. GLORIAMIN [Concomitant]
     Indication: RHEUMATOID ARTHRITIS
     Route: 048
  9. AZULFIDIN [Concomitant]
     Indication: RHEUMATOID ARTHRITIS
     Route: 048
  10. ISCOTIN [Concomitant]
     Indication: PROPHYLAXIS
     Route: 048
  11. ISCOTIN [Concomitant]
     Route: 048

REACTIONS (1)
  - TUBERCULOUS PLEURISY [None]
